FAERS Safety Report 17638024 (Version 1)
Quarter: 2020Q2

REPORT INFORMATION
  Report Type: Spontaneous
  Country: US (occurrence: US)
  Receive Date: 20200407
  Receipt Date: 20200407
  Transmission Date: 20200713
  Serious: Yes (Other)
  Sender: FDA-Public Use
  Company Number: US-AMNEAL PHARMACEUTICALS-2020-AMRX-00462

PATIENT
  Age: 8 Year
  Sex: Female

DRUGS (1)
  1. VIGABATRIN. [Suspect]
     Active Substance: VIGABATRIN
     Indication: PRODUCT USED FOR UNKNOWN INDICATION
     Dosage: 1000 MILLIGRAM, 3X/DAY
     Route: 048
     Dates: end: 202002

REACTIONS (2)
  - Drug withdrawal convulsions [Unknown]
  - Therapy cessation [Unknown]

NARRATIVE: CASE EVENT DATE: 202002
